FAERS Safety Report 17557328 (Version 5)
Quarter: 2021Q2

REPORT INFORMATION
  Report Type: Report from Study
  Country: US (occurrence: US)
  Receive Date: 20200318
  Receipt Date: 20210405
  Transmission Date: 20210716
  Serious: Yes (Hospitalization, Other)
  Sender: FDA-Public Use
  Company Number: US-SHIRE-US202009469

PATIENT
  Age: 53 Year
  Sex: Female
  Weight: 80 kg

DRUGS (12)
  1. TEDUGLUTIDE [Suspect]
     Active Substance: TEDUGLUTIDE
     Dosage: 0.44 MILLILITER, QD
     Route: 058
  2. TEDUGLUTIDE [Suspect]
     Active Substance: TEDUGLUTIDE
     Dosage: UNK UNK, UNKNOWN
     Route: 058
     Dates: start: 20170105
  3. TEDUGLUTIDE [Suspect]
     Active Substance: TEDUGLUTIDE
     Dosage: UNK UNK, UNKNOWN
     Route: 058
     Dates: start: 20170105
  4. TEDUGLUTIDE [Suspect]
     Active Substance: TEDUGLUTIDE
     Indication: MALABSORPTION
     Dosage: 3.990 UNK, 1X/DAY:QD
     Route: 058
     Dates: start: 20171205
  5. TEDUGLUTIDE [Suspect]
     Active Substance: TEDUGLUTIDE
     Dosage: 0.44 MILLILITER, QD
     Route: 058
  6. TEDUGLUTIDE [Suspect]
     Active Substance: TEDUGLUTIDE
     Dosage: 0.44 MILLILITER, QD
     Route: 058
  7. TEDUGLUTIDE [Suspect]
     Active Substance: TEDUGLUTIDE
     Dosage: UNK UNK, UNKNOWN
     Route: 058
     Dates: start: 20170105
  8. TEDUGLUTIDE [Suspect]
     Active Substance: TEDUGLUTIDE
     Indication: MALABSORPTION
     Dosage: 3.990 UNK, 1X/DAY:QD
     Route: 058
     Dates: start: 20171205
  9. TEDUGLUTIDE [Suspect]
     Active Substance: TEDUGLUTIDE
     Indication: MALABSORPTION
     Dosage: 3.990 UNK, 1X/DAY:QD
     Route: 058
     Dates: start: 20171205
  10. TEDUGLUTIDE [Suspect]
     Active Substance: TEDUGLUTIDE
     Dosage: 0.44 MILLILITER, QD
     Route: 058
  11. TEDUGLUTIDE [Suspect]
     Active Substance: TEDUGLUTIDE
     Indication: MALABSORPTION
     Dosage: 3.990 UNK, 1X/DAY:QD
     Route: 058
     Dates: start: 20171205
  12. TEDUGLUTIDE [Suspect]
     Active Substance: TEDUGLUTIDE
     Dosage: UNK UNK, UNKNOWN
     Route: 058
     Dates: start: 20170105

REACTIONS (9)
  - Hypotension [Recovered/Resolved]
  - Bacterial sepsis [Recovered/Resolved]
  - Gastrointestinal infection [Recovered/Resolved]
  - Hospitalisation [Recovered/Resolved]
  - Illness [Unknown]
  - Hypokalaemia [Not Recovered/Not Resolved]
  - Vomiting [Unknown]
  - Intentional product use issue [Unknown]
  - Oropharyngeal pain [Unknown]

NARRATIVE: CASE EVENT DATE: 20200323
